FAERS Safety Report 4881329-X (Version None)
Quarter: 2005Q4

REPORT INFORMATION
  Report Type: 
  Country: None (occurrence: None)
  Receive Date: 20051212
  Receipt Date: 20050825
  Transmission Date: 20060501
  Serious: Yes (Other)
  Sender: FDA-Public Use
  Company Number: 2005-01824

PATIENT

DRUGS (1)
  1. VELCADE [Suspect]

REACTIONS (1)
  - HERPES ZOSTER [None]
